FAERS Safety Report 5757851-0 (Version None)
Quarter: 2008Q2

REPORT INFORMATION
  Report Type: 
  Country: None (occurrence: None)
  Receive Date: 20080603
  Receipt Date: 20080528
  Transmission Date: 20081010
  Serious: Yes (Other)
  Sender: FDA-Public Use
  Company Number: PHNU2008DE01739

PATIENT
  Sex: Female
  Weight: 76 kg

DRUGS (3)
  1. PROVAS 160 MAXX [Suspect]
     Indication: HYPERTENSION
     Dosage: 0.5 DF, QD
     Route: 048
     Dates: start: 20070426, end: 20070530
  2. EUTHYROX [Concomitant]
     Indication: AUTOIMMUNE THYROIDITIS
     Dosage: 50 AND 75 UG ALTERNATING
     Dates: start: 20000101
  3. LEVOTHYROXINE SODIUM [Concomitant]
     Indication: AUTOIMMUNE THYROIDITIS
     Dosage: 50-75 MG

REACTIONS (3)
  - ANGINA PECTORIS [None]
  - ARRHYTHMIA [None]
  - BLOOD PRESSURE INCREASED [None]
